FAERS Safety Report 20624695 (Version 1)
Quarter: 2022Q1

REPORT INFORMATION
  Report Type: Spontaneous
  Country: US (occurrence: None)
  Receive Date: 20220323
  Receipt Date: 20220323
  Transmission Date: 20220424
  Serious: No
  Sender: FDA-Public Use
  Company Number: 2022A094960

PATIENT
  Sex: Female
  Weight: 46.7 kg

DRUGS (1)
  1. FASLODEX [Suspect]
     Active Substance: FULVESTRANT
     Indication: Breast cancer metastatic
     Route: 030

REACTIONS (4)
  - Injection site pain [Recovering/Resolving]
  - Injection site scar [Recovering/Resolving]
  - Injection site reaction [Recovering/Resolving]
  - Incorrect dose administered [Recovering/Resolving]
